FAERS Safety Report 4751112-4 (Version None)
Quarter: 2005Q3

REPORT INFORMATION
  Report Type: 
  Country: None (occurrence: None)
  Receive Date: 20050823
  Receipt Date: 20050808
  Transmission Date: 20060218
  Serious: Yes (Death)
  Sender: FDA-Public Use
  Company Number: 2005S1005256

PATIENT
  Age: 41 Year
  Sex: Female

DRUGS (4)
  1. CLOZAPINE [Suspect]
     Indication: BORDERLINE PERSONALITY DISORDER
     Dosage: 475 MG;QD;PO
     Route: 048
     Dates: end: 20050617
  2. LITHIUM CARBONATE [Concomitant]
  3. MIRTAZAPINE [Concomitant]
  4. OXCARBAZEPINE [Concomitant]

REACTIONS (2)
  - PULMONARY FIBROSIS [None]
  - WHITE BLOOD CELL COUNT DECREASED [None]
